FAERS Safety Report 12390341 (Version 2)
Quarter: 2016Q2

REPORT INFORMATION
  Report Type: Report from Study
  Country: CO (occurrence: CO)
  Receive Date: 20160520
  Receipt Date: 20160616
  Transmission Date: 20160815
  Serious: Yes (Other)
  Sender: FDA-Public Use
  Company Number: PHHY2016CO021089

PATIENT
  Age: 67 Year
  Sex: Male
  Weight: 47 kg

DRUGS (5)
  1. VOTRIENT [Suspect]
     Active Substance: PAZOPANIB HYDROCHLORIDE
     Indication: METASTASES TO BONE
     Dosage: 200 MG, BID
     Route: 048
  2. ACETAMINOPHEN AND CODEINE [Concomitant]
     Active Substance: ACETAMINOPHEN\CODEINE PHOSPHATE
     Indication: PAIN
     Dosage: 500 MG, TID
     Route: 048
  3. VOTRIENT [Suspect]
     Active Substance: PAZOPANIB HYDROCHLORIDE
     Indication: RENAL CELL CARCINOMA
     Dosage: 4 DF, QD (2 IN THE MORNING AND 2 AT NIGHT)
     Route: 048
  4. LOPERAMIDE [Concomitant]
     Active Substance: LOPERAMIDE
     Indication: DIARRHOEA
     Dosage: 200 MG, TID
     Route: 048
  5. GASTRUM [Concomitant]
     Indication: PRODUCT USED FOR UNKNOWN INDICATION
     Route: 065

REACTIONS (15)
  - Swelling [Unknown]
  - Bone pain [Unknown]
  - Pain [Unknown]
  - Decreased appetite [Unknown]
  - Malaise [Unknown]
  - Haematochezia [Unknown]
  - Diarrhoea [Unknown]
  - Bone swelling [Unknown]
  - Inflammation [Recovering/Resolving]
  - Weight decreased [Unknown]
  - Bone neoplasm [Unknown]
  - Gait disturbance [Unknown]
  - Amnesia [Unknown]
  - Dyspepsia [Unknown]
  - Chest pain [Unknown]

NARRATIVE: CASE EVENT DATE: 20160229
